FAERS Safety Report 7450717-X (Version None)
Quarter: 2011Q2

REPORT INFORMATION
  Report Type: 
  Country: None (occurrence: None)
  Receive Date: 20110502
  Receipt Date: 20110427
  Transmission Date: 20111010
  Serious: Yes (Life-Threatening, Hospitalization)
  Sender: FDA-Public Use
  Company Number: US-SANOFI-AVENTIS-2010SA027823

PATIENT
  Age: 63 Year
  Sex: Male
  Weight: 104.5 kg

DRUGS (22)
  1. MULTI-VITAMINS [Concomitant]
  2. FLAGYL [Concomitant]
     Dates: start: 20100506
  3. FAMOTIDINE [Concomitant]
     Dates: start: 20100401, end: 20100422
  4. DIPHENHYDRAMINE [Concomitant]
     Dates: start: 20100401, end: 20100422
  5. CABAZITAXEL [Suspect]
     Route: 042
     Dates: start: 20100401, end: 20100401
  6. APREPITANT [Suspect]
     Dates: start: 20100424, end: 20100424
  7. DEXAMETHASONE [Concomitant]
     Dates: start: 20100401, end: 20100422
  8. CISPLATIN [Suspect]
     Route: 042
     Dates: start: 20100401, end: 20100401
  9. NORMAL SALINE [Concomitant]
     Route: 042
     Dates: start: 20100401, end: 20100422
  10. CABAZITAXEL [Suspect]
     Route: 042
     Dates: start: 20100422, end: 20100422
  11. APREPITANT [Suspect]
     Dates: start: 20100423, end: 20100423
  12. CIPROFLOXACIN [Concomitant]
     Dates: start: 20100506
  13. CELEBREX [Concomitant]
  14. WARFARIN [Concomitant]
  15. HYDROCHLOROTHIAZIDE [Concomitant]
  16. DIPHENHYDRAMINE [Concomitant]
     Dates: start: 20100422, end: 20100422
  17. CISPLATIN [Suspect]
     Route: 042
     Dates: start: 20100422, end: 20100422
  18. APREPITANT [Suspect]
     Dates: start: 20100422, end: 20100422
  19. LOVENOX [Concomitant]
  20. CYMBALTA [Concomitant]
  21. DEXAMETHASONE [Concomitant]
     Dates: start: 20100422, end: 20100422
  22. ALOXI [Concomitant]
     Dates: start: 20100401, end: 20100422

REACTIONS (4)
  - DUODENAL ULCER [None]
  - DIVERTICULUM INTESTINAL HAEMORRHAGIC [None]
  - NEOPLASM PROGRESSION [None]
  - BILE DUCT CANCER [None]
